FAERS Safety Report 10291618 (Version 1)
Quarter: 2014Q3

REPORT INFORMATION
  Report Type: Spontaneous
  Country: US (occurrence: US)
  Receive Date: 20140710
  Receipt Date: 20140710
  Transmission Date: 20150326
  Serious: No
  Sender: FDA-Public Use
  Company Number: US-PURDUE-USA-2013-0105734

PATIENT
  Sex: Male

DRUGS (2)
  1. BUTRANS [Suspect]
     Active Substance: BUPRENORPHINE
     Indication: AUTOIMMUNE DISORDER
     Dosage: 20 MCG/HR, WEEKLY
     Route: 062
     Dates: start: 201302
  2. HYDROCODONE BITARTRATE (SIMILAR TO IND 59,175) [Concomitant]
     Indication: BREAKTHROUGH PAIN
     Dosage: 7.5/300 MG, PRN
     Route: 048
     Dates: start: 2010

REACTIONS (4)
  - Inadequate analgesia [Not Recovered/Not Resolved]
  - Blood pressure increased [Not Recovered/Not Resolved]
  - Pain [Not Recovered/Not Resolved]
  - Drug effect decreased [Not Recovered/Not Resolved]
